FAERS Safety Report 16390030 (Version 4)
Quarter: 2019Q3

REPORT INFORMATION
  Report Type: Spontaneous
  Country: JP (occurrence: JP)
  Receive Date: 20190604
  Receipt Date: 20190716
  Transmission Date: 20191004
  Serious: Yes (Other)
  Sender: FDA-Public Use
  Company Number: JP-AMGEN-JPNSP2019086489

PATIENT
  Age: 88 Year
  Sex: Female
  Weight: 55 kg

DRUGS (9)
  1. NIFEDIPINE CR [Concomitant]
     Active Substance: NIFEDIPINE
     Indication: HYPERTENSION
     Dosage: 20 MILLIGRAM, QD
  2. ARTZ DISPO [Concomitant]
     Indication: OSTEOARTHRITIS
  3. PRAVASTATIN NA [Concomitant]
     Active Substance: PRAVASTATIN SODIUM
     Indication: HYPERLIPIDAEMIA
     Dosage: 5 MILLIGRAM, QD
     Route: 065
  4. ARTZ DISPO [Concomitant]
     Indication: PERIARTHRITIS
     Dosage: 25 MILLIGRAM, ONCE AT ONSET OF PAIN
     Route: 065
     Dates: start: 20180517, end: 20190517
  5. EVENITY [Suspect]
     Active Substance: ROMOSOZUMAB-AQQG
     Indication: OSTEOPOROSIS
     Dosage: 210 MILLIGRAM, QMO
     Route: 058
     Dates: start: 20190517, end: 20190527
  6. DECADRON [DEXAMETHASONE SODIUM PHOSPHATE] [Concomitant]
     Indication: PERIARTHRITIS
     Dosage: UNK, 1.65 MG/ 0.5 ML, ONCE AT ONSET OF PAIN
     Route: 065
     Dates: start: 20190517, end: 20190517
  7. PROCAINE [Concomitant]
     Active Substance: PROCAINE
     Indication: OSTEOARTHRITIS
  8. PROCAINE [Concomitant]
     Active Substance: PROCAINE
     Indication: PERIARTHRITIS
     Dosage: 1 MILLILITER, ONCE AT ONSET OF PAIN
     Route: 065
     Dates: start: 20180517, end: 20190517
  9. DOXAZOSIN [Concomitant]
     Active Substance: DOXAZOSIN MESYLATE
     Indication: HYPERTENSION
     Dosage: 1 MILLIGRAM, QD
     Route: 065

REACTIONS (4)
  - Nausea [Recovering/Resolving]
  - Palpitations [Recovering/Resolving]
  - Dizziness [Recovering/Resolving]
  - Headache [Recovering/Resolving]

NARRATIVE: CASE EVENT DATE: 20190518
